FAERS Safety Report 8813117 (Version 2)
Quarter: 2012Q4

REPORT INFORMATION
  Report Type: 
  Country: US (occurrence: US)
  Receive Date: 20120927
  Receipt Date: 20121219
  Transmission Date: 20130627
  Serious: No
  Sender: FDA-Public Use
  Company Number: US-AMGEN-USASP2012053234

PATIENT
  Age: 87 Year
  Sex: Female

DRUGS (7)
  1. PROLIA [Suspect]
     Indication: OSTEOPOROSIS POSTMENOPAUSAL
     Dosage: 60 UNK, UNK
     Route: 058
     Dates: start: 20110104, end: 20110704
  2. CALCIUM [Concomitant]
     Dosage: UNK
  3. VITAMIN D /00107901/ [Concomitant]
     Dosage: UNK
  4. B12                                /00056201/ [Concomitant]
     Dosage: UNK UNK, qd
     Dates: start: 20120615, end: 20120615
  5. B12                                /00056201/ [Concomitant]
     Dosage: UNK, 3 times/wk
  6. THYROID [Concomitant]
  7. LIPITOR [Concomitant]

REACTIONS (2)
  - Arthralgia [Not Recovered/Not Resolved]
  - Vitamin B12 increased [Unknown]
